FAERS Safety Report 18404331 (Version 1)
Quarter: 2020Q4

REPORT INFORMATION
  Report Type: Report from Study
  Country: CA (occurrence: CA)
  Receive Date: 20201020
  Receipt Date: 20201020
  Transmission Date: 20210114
  Serious: Yes (Other)
  Sender: FDA-Public Use
  Company Number: CA-TOLMAR, INC.-20CA023208

PATIENT
  Age: 65 Year
  Sex: Male
  Weight: 92.3 kg

DRUGS (1)
  1. ELIGARD [Suspect]
     Active Substance: LEUPROLIDE ACETATE
     Indication: PROSTATE CANCER
     Dosage: 45 MG, Q 6 MONTH
     Route: 058
     Dates: start: 20201002

REACTIONS (3)
  - Spinal disorder [Unknown]
  - Injection site pain [Unknown]
  - Rib fracture [Unknown]

NARRATIVE: CASE EVENT DATE: 202010
